FAERS Safety Report 7113659-5 (Version None)
Quarter: 2010Q4

REPORT INFORMATION
  Report Type: 
  Country: None (occurrence: None)
  Receive Date: 20101119
  Receipt Date: 20101111
  Transmission Date: 20110411
  Serious: Yes (Other)
  Sender: FDA-Public Use
  Company Number: US-JNJCH-2010014234

PATIENT
  Age: 40 Year
  Sex: Male
  Weight: 74.8 kg

DRUGS (3)
  1. BENADRYL [Suspect]
     Indication: SWELLING
     Dosage: TEXT:UNKNOWN
     Route: 065
     Dates: start: 20100604
  2. LUBRIDERM DAILY MOISTURE [Suspect]
     Indication: DRY SKIN
     Dosage: TEXT:ONE TIME PER DAY
     Route: 061
  3. LUBRIDERM SKIN NOURISHING WITH OAT EXTRACT [Suspect]
     Indication: DRY SKIN
     Dosage: TEXT:UNKNOWN
     Route: 061

REACTIONS (8)
  - CHEMICAL BURN OF SKIN [None]
  - CONDITION AGGRAVATED [None]
  - EYE PRURITUS [None]
  - EYE SWELLING [None]
  - IMPAIRED WORK ABILITY [None]
  - OCULAR HYPERAEMIA [None]
  - PRURITUS [None]
  - SWELLING FACE [None]
